FAERS Safety Report 5815541-X (Version None)
Quarter: 2008Q3

REPORT INFORMATION
  Report Type: 
  Country: None (occurrence: None)
  Receive Date: 20080718
  Receipt Date: 20080707
  Transmission Date: 20090109
  Serious: Yes (Other)
  Sender: FDA-Public Use
  Company Number: US-PFIZER INC-2008057878

PATIENT
  Sex: Female
  Weight: 81.6 kg

DRUGS (10)
  1. CHANTIX [Suspect]
     Indication: SMOKING CESSATION THERAPY
  2. CINNAMON [Concomitant]
     Indication: RESTLESS LEGS SYNDROME
  3. NEXIUM [Concomitant]
  4. NEURONTIN [Concomitant]
     Indication: PAIN
  5. URSODIOL [Concomitant]
  6. NORCO [Concomitant]
     Indication: PAIN
  7. DESYREL [Concomitant]
  8. VENTOLIN [Concomitant]
  9. ADVAIR DISKUS 100/50 [Concomitant]
  10. ALL OTHER THERAPEUTIC PRODUCTS [Concomitant]

REACTIONS (6)
  - ABNORMAL BEHAVIOUR [None]
  - COGNITIVE DISORDER [None]
  - DYSKINESIA [None]
  - DYSPNOEA [None]
  - MENTAL IMPAIRMENT [None]
  - TREMOR [None]
